FAERS Safety Report 9743233 (Version 2)
Quarter: 2015Q3

REPORT INFORMATION
  Report Type: Spontaneous
  Country: US (occurrence: US)
  Receive Date: 20131210
  Receipt Date: 20150804
  Transmission Date: 20151125
  Serious: No
  Sender: FDA-Public Use
  Company Number: US-GILEAD-2009-0025083

PATIENT
  Age: 10 Year
  Sex: Male
  Weight: 21.32 kg

DRUGS (9)
  1. RHINOCORT AQUA [Concomitant]
     Active Substance: BUDESONIDE
  2. ADVAIR HFA [Concomitant]
     Active Substance: FLUTICASONE PROPIONATE\SALMETEROL XINAFOATE
  3. XOPENEX [Concomitant]
     Active Substance: LEVALBUTEROL HYDROCHLORIDE
  4. SPIRONOLACTONE. [Concomitant]
     Active Substance: SPIRONOLACTONE
  5. LETAIRIS [Suspect]
     Active Substance: AMBRISENTAN
     Indication: PULMONARY ARTERIAL HYPERTENSION
     Route: 048
     Dates: start: 20080410
  6. COUMADIN [Concomitant]
     Active Substance: WARFARIN SODIUM
  7. HUMATROPE [Concomitant]
     Active Substance: SOMATROPIN
  8. REVATIO [Concomitant]
     Active Substance: SILDENAFIL CITRATE
  9. VENTAVIS [Concomitant]
     Active Substance: ILOPROST

REACTIONS (2)
  - Migraine [Unknown]
  - Constipation [Unknown]
